FAERS Safety Report 8264650-7 (Version None)
Quarter: 2012Q2

REPORT INFORMATION
  Report Type: 
  Country: None (occurrence: None)
  Receive Date: 20120406
  Receipt Date: 20120403
  Transmission Date: 20120825
  Serious: Yes (Disabling)
  Sender: FDA-Public Use
  Company Number: JP-SANOFI-AVENTIS-2010SA071637

PATIENT
  Sex: Female

DRUGS (3)
  1. LASIX [Suspect]
     Route: 065
     Dates: start: 20051021, end: 20060824
  2. LASIX [Suspect]
     Indication: OEDEMA
     Route: 065
     Dates: start: 20051021, end: 20060824
  3. SPIRONOLACTONE [Concomitant]

REACTIONS (1)
  - CIRCULATORY FAILURE NEONATAL [None]
